FAERS Safety Report 8298665-X (Version None)
Quarter: 2012Q2

REPORT INFORMATION
  Report Type: 
  Country: None (occurrence: None)
  Receive Date: 20120419
  Receipt Date: 20120410
  Transmission Date: 20120825
  Serious: Yes (Hospitalization)
  Sender: FDA-Public Use
  Company Number: IN-ASTRAZENECA-2012SE23186

PATIENT
  Age: 6 Year
  Sex: Female

DRUGS (2)
  1. MEROPENEM [Suspect]
     Dosage: 60 MG/KG/DAY DIVIDED 8 HRLY
     Route: 042
  2. ANTIPYRETIC [Concomitant]

REACTIONS (2)
  - METABOLIC ALKALOSIS [None]
  - HYPOKALAEMIA [None]
